FAERS Safety Report 4899679-X (Version None)
Quarter: 2006Q1

REPORT INFORMATION
  Report Type: 
  Country: None (occurrence: None)
  Receive Date: 20060202
  Receipt Date: 20060116
  Transmission Date: 20060701
  Serious: Yes (Death, Other)
  Sender: FDA-Public Use
  Company Number: BR-MERCK-0601BRA00009

PATIENT
  Age: 93 Year
  Sex: Female

DRUGS (13)
  1. PRIMAXIN [Suspect]
     Indication: BRONCHOPNEUMONIA
     Route: 042
     Dates: start: 20051021, end: 20051028
  2. VANCOMYCIN [Concomitant]
     Indication: BRONCHOPNEUMONIA
     Route: 065
     Dates: start: 20051021
  3. ATENOLOL [Concomitant]
     Route: 065
     Dates: start: 20051015
  4. DIPYRONE [Concomitant]
     Indication: PAIN
     Route: 065
     Dates: start: 20051005
  5. DILTIAZEM HYDROCHLORIDE [Concomitant]
     Indication: HYPERTENSION
     Route: 065
     Dates: start: 20051025
  6. ASPIRIN [Concomitant]
     Indication: PAIN
     Route: 048
     Dates: start: 20051009
  7. DALTEPARIN SODIUM [Concomitant]
     Indication: THROMBOSIS
     Route: 065
     Dates: start: 20051005
  8. METRONIDAZOLE [Concomitant]
     Indication: CLOSTRIDIUM COLITIS
     Route: 065
     Dates: start: 20051025
  9. OMEPRAZOLE [Concomitant]
     Indication: PEPTIC ULCER
     Route: 065
     Dates: start: 20051016
  10. DIMETHICONE [Concomitant]
     Route: 065
     Dates: start: 20051007
  11. VITAMIN B (UNSPECIFIED) [Concomitant]
     Route: 065
     Dates: start: 20051005
  12. BENSERAZIDE HYDROCHLORIDE AND LEVODOPA [Concomitant]
     Route: 065
     Dates: start: 20051025
  13. VITAMIN E [Concomitant]
     Route: 065
     Dates: start: 20051019

REACTIONS (2)
  - CONVULSION [None]
  - DEATH [None]
